FAERS Safety Report 4625965-4 (Version None)
Quarter: 2005Q1

REPORT INFORMATION
  Report Type: 
  Country: None (occurrence: None)
  Receive Date: 20050330
  Receipt Date: 20050322
  Transmission Date: 20050727
  Serious: Yes (Other)
  Sender: FDA-Public Use
  Company Number: 2005048401

PATIENT
  Sex: Female
  Weight: 76.6579 kg

DRUGS (7)
  1. CELECOXIB (CELECOXIB) [Suspect]
     Indication: ARTHRITIS
  2. WARFARIN SODIUM [Concomitant]
  3. ALL OTHER NON-THERAPEUTIC PRODUCTS (ALL OTHER NON-THERAPEUTIC PRODUCTS [Concomitant]
  4. GABAPENTIN 9GABAPENTIN) [Concomitant]
  5. HYZAAR [Concomitant]
  6. ISOSORBIDE MONONITRATE [Concomitant]
  7. METOPROLOL TARTRATE [Concomitant]

REACTIONS (10)
  - ATRIAL FIBRILLATION [None]
  - DIABETES MELLITUS [None]
  - ENDOMETRIOSIS [None]
  - EYE DISORDER [None]
  - EYE HAEMORRHAGE [None]
  - INGUINAL HERNIA [None]
  - MACULAR DEGENERATION [None]
  - MUSCULAR WEAKNESS [None]
  - NEURITIS [None]
  - OEDEMA PERIPHERAL [None]
